FAERS Safety Report 9707665 (Version 1)
Quarter: 2013Q4

REPORT INFORMATION
  Report Type: Spontaneous
  Country: US (occurrence: None)
  Receive Date: 20131122
  Receipt Date: 20131122
  Transmission Date: 20140711
  Serious: No
  Sender: FDA-Public Use
  Company Number: None

PATIENT
  Age: 71 Year
  Sex: Male

DRUGS (1)
  1. RANEXA 500 MG GILEAD [Suspect]
     Indication: ANGINA PECTORIS
     Dosage: 1 PILL ONCE DAILY TAKEN BY MOUTH
     Route: 048
     Dates: start: 20130831, end: 20131031

REACTIONS (4)
  - Nausea [None]
  - Dizziness [None]
  - Constipation [None]
  - Headache [None]
